FAERS Safety Report 18986719 (Version 3)
Quarter: 2021Q1

REPORT INFORMATION
  Report Type: Spontaneous
  Country: US (occurrence: US)
  Receive Date: 20210309
  Receipt Date: 20210316
  Transmission Date: 20210420
  Serious: Yes (Life-Threatening, Hospitalization, Other)
  Sender: FDA-Public Use
  Company Number: US-PFIZER INC-2021252206

PATIENT
  Age: 22 Year
  Sex: Male

DRUGS (8)
  1. HYDROXYZINE PAMOATE. [Suspect]
     Active Substance: HYDROXYZINE PAMOATE
     Dosage: UNK
  2. BUPRENORPHINE. [Suspect]
     Active Substance: BUPRENORPHINE
     Dosage: UNK
  3. VENLAFAXINE HCL [Suspect]
     Active Substance: VENLAFAXINE HYDROCHLORIDE
     Indication: DEPRESSION
     Dosage: UNK
  4. DEXTROMETHORPHAN [Suspect]
     Active Substance: DEXTROMETHORPHAN
     Indication: DEPRESSION
     Dosage: UNK
  5. BUPROPION. [Suspect]
     Active Substance: BUPROPION
     Indication: DEPRESSION
     Dosage: UNK
  6. VILOXAZINE. [Suspect]
     Active Substance: VILOXAZINE
     Indication: DEPRESSION
     Dosage: UNK
  7. QUETIAPINE. [Suspect]
     Active Substance: QUETIAPINE
     Indication: DEPRESSION
     Dosage: UNK
  8. CHLORCYCLIZINE [Suspect]
     Active Substance: CHLORCYCLIZINE
     Dosage: UNK

REACTIONS (6)
  - Hyperthermia [Recovered/Resolved]
  - Overdose [Recovered/Resolved]
  - Serotonin syndrome [Recovered/Resolved]
  - Toxic encephalopathy [Recovered/Resolved]
  - Rhabdomyolysis [Recovered/Resolved]
  - Cardiac arrest [Recovered/Resolved]
